FAERS Safety Report 26137350 (Version 1)
Quarter: 2025Q4

REPORT INFORMATION
  Report Type: Spontaneous
  Country: GB (occurrence: GB)
  Receive Date: 20251209
  Receipt Date: 20251209
  Transmission Date: 20260119
  Serious: Yes (Hospitalization, Disabling, Other)
  Sender: ELI LILLY AND COMPANY
  Company Number: None

PATIENT
  Age: 61 Year
  Sex: Female
  Weight: 155 kg

DRUGS (7)
  1. MOUNJARO [Suspect]
     Active Substance: TIRZEPATIDE
     Indication: Product used for unknown indication
     Dosage: 5MG /0.6 ML, WEEKLY (1/W)
     Route: 058
     Dates: start: 20250728
  2. CODEINE [Concomitant]
     Active Substance: CODEINE
     Indication: Type 2 diabetes mellitus
     Dosage: 1 DOSAGE FORM, OTHER (ONE OR 2 TABLET AS REQUIRED FOR PAIN, MAX 4 TIME DAILY)
     Route: 065
     Dates: start: 20250707, end: 20250819
  3. CODEINE [Concomitant]
     Active Substance: CODEINE
     Indication: Pain
  4. IBUPROFEN [Concomitant]
     Active Substance: IBUPROFEN
     Indication: Product used for unknown indication
     Dosage: 100 G, TID (APPLY UP TO THREE TIMES A DAY AS REQUIRED)
     Route: 065
     Dates: start: 20250804, end: 20250916
  5. ACETAMINOPHEN [Concomitant]
     Active Substance: ACETAMINOPHEN
     Indication: Product used for unknown indication
     Dosage: 2 DOSAGE FORM, OTHER (TWO TO BE TAKEN EVERY 4-6 HOURS UP TO FOUR TIMES A DAY)
     Route: 065
     Dates: start: 20250811, end: 20250909
  6. CYCLIZINE [Concomitant]
     Active Substance: CYCLIZINE
     Indication: Type 2 diabetes mellitus
     Dosage: 1 DOSAGE FORM, TID
     Route: 065
     Dates: start: 20250903
  7. METFORMIN [Concomitant]
     Active Substance: METFORMIN HYDROCHLORIDE
     Indication: Type 2 diabetes mellitus
     Dosage: 2 DOSAGE FORM, BID (TWO SACHETS DISSOLVED IN WATER TWICE DAILY)
     Route: 065
     Dates: start: 20250919

REACTIONS (3)
  - Hypocalcaemia [Recovering/Resolving]
  - Hypomagnesaemia [Recovering/Resolving]
  - Vitamin D deficiency [Unknown]

NARRATIVE: CASE EVENT DATE: 20250918
